FAERS Safety Report 10963815 (Version 4)
Quarter: 2015Q2

REPORT INFORMATION
  Report Type: Spontaneous
  Country: US (occurrence: US)
  Receive Date: 20150328
  Receipt Date: 20150524
  Transmission Date: 20150821
  Serious: No
  Sender: FDA-Public Use
  Company Number: US-JNJFOC-20150300521

PATIENT
  Sex: Male
  Weight: 66.68 kg

DRUGS (10)
  1. DURAGESIC [Suspect]
     Active Substance: FENTANYL
     Indication: MYOFASCIAL PAIN SYNDROME
     Route: 062
     Dates: end: 2006
  2. DURAGESIC [Suspect]
     Active Substance: FENTANYL
     Indication: HEADACHE
     Route: 062
     Dates: end: 2006
  3. PHENERGAN [Concomitant]
     Active Substance: PROMETHAZINE HYDROCHLORIDE
     Indication: NAUSEA
     Dosage: UPTO 4 TIMES A DAY
     Route: 048
  4. DURAGESIC [Suspect]
     Active Substance: FENTANYL
     Indication: HEADACHE
     Route: 062
     Dates: start: 2006, end: 2007
  5. DURAGESIC [Suspect]
     Active Substance: FENTANYL
     Indication: MUSCULOSKELETAL PAIN
     Route: 062
     Dates: end: 2006
  6. DURAGESIC [Suspect]
     Active Substance: FENTANYL
     Indication: MYOFASCIAL PAIN SYNDROME
     Route: 062
     Dates: start: 2007
  7. DURAGESIC [Suspect]
     Active Substance: FENTANYL
     Indication: MYOFASCIAL PAIN SYNDROME
     Route: 062
     Dates: start: 2006, end: 2007
  8. DURAGESIC [Suspect]
     Active Substance: FENTANYL
     Indication: MUSCULOSKELETAL PAIN
     Route: 062
     Dates: start: 2006, end: 2007
  9. DURAGESIC [Suspect]
     Active Substance: FENTANYL
     Indication: MUSCULOSKELETAL PAIN
     Route: 062
     Dates: start: 2007
  10. DURAGESIC [Suspect]
     Active Substance: FENTANYL
     Indication: HEADACHE
     Route: 062
     Dates: start: 2007

REACTIONS (4)
  - Drug ineffective [Unknown]
  - Product quality issue [Unknown]
  - Drug effect decreased [Unknown]
  - Malaise [Unknown]

NARRATIVE: CASE EVENT DATE: 2007
